FAERS Safety Report 9702620 (Version 2)
Quarter: 2013Q4

REPORT INFORMATION
  Report Type: Spontaneous
  Country: DE (occurrence: DE)
  Receive Date: 20131121
  Receipt Date: 20131121
  Transmission Date: 20140711
  Serious: Yes (Other)
  Sender: FDA-Public Use
  Company Number: DE-BAXTER-2013BAX038318

PATIENT
  Sex: 0

DRUGS (1)
  1. CEPROTIN 500 I.E. [Suspect]
     Indication: PROTEIN C DEFICIENCY
     Route: 058

REACTIONS (2)
  - Injection site infection [Unknown]
  - Cellulitis [Unknown]
